FAERS Safety Report 18830378 (Version 1)
Quarter: 2021Q1

REPORT INFORMATION
  Report Type: Spontaneous
  Country: US (occurrence: US)
  Receive Date: 20210202
  Receipt Date: 20210202
  Transmission Date: 20210419
  Serious: Yes (Death, Other)
  Sender: FDA-Public Use
  Company Number: None

PATIENT
  Age: 90 Year
  Sex: Male
  Weight: 88 kg

DRUGS (20)
  1. APIXABAN 2.5 MG PO BID [Concomitant]
  2. METOPROLOL SUCCINATE 50 MG PO QPM [Concomitant]
  3. ZINC SULFATE 2 TABS DAILY [Concomitant]
  4. DOBUTAMINE 2 MCG/KG/MIN [Concomitant]
     Dates: start: 20201224, end: 20201224
  5. FLUTICASONE 50 MCG INTRANASAL 1 SPRAY QAM [Concomitant]
  6. FUROSEMIDE 40 MG PO QAM [Concomitant]
  7. ENTRESTO 24?26MG PO 0.5 TAB QAM, 1 TAB QPM [Concomitant]
  8. DIGOXIN 125 MCG PO QPM [Concomitant]
  9. RANOLAZINE 1,000 MG PO BID [Concomitant]
  10. BAMLANIVIMAB. [Suspect]
     Active Substance: BAMLANIVIMAB
     Indication: COVID-19
     Dosage: ?          OTHER FREQUENCY:ONE TIME;?
     Route: 042
     Dates: start: 20201218
  11. NS 20 ML/HR IV [Concomitant]
     Dates: start: 20201224, end: 20201224
  12. ATORVASTATIN 80 MG PO QHS [Concomitant]
  13. LORATADINE 10 MG PO DAILY [Concomitant]
  14. MIDODRINE 2.5 MG PO BID [Concomitant]
  15. ASPIRIN 81 MG PO QAM [Concomitant]
  16. DEXAMETHASONE 3 MG PO BID [Concomitant]
  17. POTASSIUM CHLORIDE ER 20 MEQ PO EVERY OTHER DAY [Concomitant]
  18. ASPIRIN 325 MG PO X1 [Concomitant]
     Dates: start: 20201224, end: 20201224
  19. CHOLECALCIFEROL 1,000 IU PO DAILY WITH FOOD [Concomitant]
  20. PANTOPRAZOLE 40 MG PO QAM [Concomitant]

REACTIONS (11)
  - Chest pain [None]
  - Pallor [None]
  - Unresponsive to stimuli [None]
  - Pulseless electrical activity [None]
  - Cardiogenic shock [None]
  - Dyspnoea [None]
  - Oxygen saturation decreased [None]
  - General physical health deterioration [None]
  - Myocardial infarction [None]
  - Cardiac arrest [None]
  - Respiratory distress [None]

NARRATIVE: CASE EVENT DATE: 20201224
